FAERS Safety Report 18378120 (Version 4)
Quarter: 2022Q2

REPORT INFORMATION
  Report Type: Report from Study
  Country: FR (occurrence: FR)
  Receive Date: 20201013
  Receipt Date: 20220607
  Transmission Date: 20220721
  Serious: Yes (Hospitalization)
  Sender: FDA-Public Use
  Company Number: FR-EXELIXIS-XL18420033731

PATIENT

DRUGS (5)
  1. CABOZANTINIB [Suspect]
     Active Substance: CABOZANTINIB
     Indication: Cervix carcinoma
     Dosage: 60 MG, QD
     Route: 048
     Dates: start: 20200716, end: 20200921
  2. FUNGIZONE [Concomitant]
     Active Substance: AMPHOTERICIN B
     Indication: Stomatitis
     Dosage: 10 %
     Route: 048
     Dates: start: 20200908, end: 20200918
  3. Ulcar [Concomitant]
     Indication: Stomatitis
     Dosage: 1 G
     Route: 002
     Dates: start: 20200908, end: 20200918
  4. TINZAPARIN [Concomitant]
     Active Substance: TINZAPARIN
     Indication: Thrombosis
     Dosage: UNK
     Route: 058
     Dates: start: 201903, end: 20200918
  5. ACETAMINOPHEN\OPIUM [Concomitant]
     Active Substance: ACETAMINOPHEN\OPIUM
     Indication: Pain
     Dosage: UNK

REACTIONS (2)
  - Lymph node rupture [Recovered/Resolved]
  - Fistula [Recovered/Resolved]

NARRATIVE: CASE EVENT DATE: 20200918
